FAERS Safety Report 12462319 (Version 6)
Quarter: 2017Q1

REPORT INFORMATION
  Report Type: Report from Study
  Country: JP (occurrence: JP)
  Receive Date: 20160613
  Receipt Date: 20170307
  Transmission Date: 20170428
  Serious: Yes (Other)
  Sender: FDA-Public Use
  Company Number: JP-ALXN-A201604204AA

PATIENT
  Age: 30 Year
  Sex: Female
  Weight: 47 kg

DRUGS (49)
  1. SOLIRIS [Suspect]
     Active Substance: ECULIZUMAB
     Dosage: 1200 MG, Q2W
     Route: 042
     Dates: start: 20160629
  2. CONIEL [Concomitant]
     Active Substance: BENIDIPINE HYDROCHLORIDE
     Dosage: 2 MG, QD
     Route: 048
     Dates: start: 20160521, end: 20160523
  3. SOLDEM 1 [Concomitant]
     Active Substance: DEXTROSE\SODIUM CHLORIDE\SODIUM LACTATE
     Dosage: 500 ML, QD
     Route: 041
     Dates: start: 20160711, end: 20160711
  4. CARTARETIN [Concomitant]
     Active Substance: CALCIUM CARBONATE
     Indication: THROMBOTIC MICROANGIOPATHY
     Dosage: 500 MG, TID
     Route: 048
     Dates: start: 20160517
  5. PREDONINE [Concomitant]
     Active Substance: PREDNISOLONE
     Dosage: 12.5 MG, QD
     Route: 048
     Dates: start: 20160624, end: 20160630
  6. PREDONINE [Concomitant]
     Active Substance: PREDNISOLONE
     Dosage: 10 MG, QD
     Route: 048
     Dates: start: 20160701, end: 20160707
  7. DOXAZOSIN [Concomitant]
     Active Substance: DOXAZOSIN\DOXAZOSIN MESYLATE
     Indication: HYPERTENSION
     Dosage: 0.5 MG, QD
     Route: 048
     Dates: start: 20160623, end: 20160627
  8. FESIN                              /00023550/ [Concomitant]
     Active Substance: IRON SUCROSE
     Indication: IRON DEFICIENCY ANAEMIA
     Dosage: 40 MG, QW
     Route: 042
     Dates: start: 20160711
  9. CEFAZOLIN SODIUM. [Concomitant]
     Active Substance: CEFAZOLIN SODIUM
     Indication: INFECTION PROPHYLAXIS
     Dosage: 1 G, QD
     Route: 041
     Dates: start: 20160711, end: 20160711
  10. ATROPINE. [Concomitant]
     Active Substance: ATROPINE
     Indication: BIOPSY KIDNEY
     Dosage: 0.5 MG, QD
     Route: 041
     Dates: start: 20160711, end: 20160711
  11. CONIEL [Concomitant]
     Active Substance: BENIDIPINE HYDROCHLORIDE
     Dosage: 4 MG, QD
     Route: 048
     Dates: start: 20160503, end: 20160503
  12. GASTER [Concomitant]
     Active Substance: FAMOTIDINE
     Indication: GASTRITIS PROPHYLAXIS
     Dosage: 10 MG, QD
     Route: 048
     Dates: start: 20160506
  13. SOLDEM 1 [Concomitant]
     Active Substance: DEXTROSE\SODIUM CHLORIDE\SODIUM LACTATE
     Indication: THROMBOTIC MICROANGIOPATHY
     Dosage: 500 ML, QD
     Route: 041
     Dates: start: 20160503, end: 20160506
  14. PREDONINE [Concomitant]
     Active Substance: PREDNISOLONE
     Dosage: 15 MG IN THE MORNING AND 10 MG AT NOON
     Route: 048
     Dates: start: 20160520, end: 20160526
  15. PREDONINE [Concomitant]
     Active Substance: PREDNISOLONE
     Dosage: 7.5 MG, QD
     Route: 048
     Dates: start: 20160708, end: 20160714
  16. HEPAFILLED [Concomitant]
     Indication: THROMBOTIC MICROANGIOPATHY
     Dosage: 5000 IU, UNK
     Route: 041
     Dates: start: 20160702
  17. NESP [Concomitant]
     Active Substance: DARBEPOETIN ALFA
     Indication: NEPHROGENIC ANAEMIA
     Dosage: 60 ?G, QW
     Route: 042
     Dates: start: 20160702
  18. AMOXICILLIN                        /00249602/ [Concomitant]
     Active Substance: AMOXICILLIN
     Indication: INFECTION PROPHYLAXIS
     Dosage: 250 MG, BID
     Route: 048
     Dates: start: 20160601, end: 20160609
  19. AMOXICILLIN                        /00249602/ [Concomitant]
     Active Substance: AMOXICILLIN
     Dosage: 250 MG, BID
     Route: 048
     Dates: start: 20160609, end: 20160627
  20. EPOGIN [Concomitant]
     Active Substance: ERYTHROPOIETIN
     Indication: NEPHROGENIC ANAEMIA
     Dosage: 3000 DF, TIW DURING HEMODIALYSIS
     Route: 042
     Dates: start: 20160426, end: 20160629
  21. COMELIAN [Concomitant]
     Active Substance: DILAZEP
     Indication: THROMBOTIC MICROANGIOPATHY
     Dosage: 100 MG, TID
     Route: 048
     Dates: start: 20160503, end: 20160526
  22. NEXIUM [Concomitant]
     Active Substance: ESOMEPRAZOLE MAGNESIUM
     Indication: GASTRITIS PROPHYLAXIS
     Dosage: 20 MG, QD
     Route: 048
     Dates: start: 20160503, end: 20160505
  23. PREDONINE [Concomitant]
     Active Substance: PREDNISOLONE
     Dosage: 10 MG, BID
     Route: 048
     Dates: start: 20160527, end: 20160602
  24. PREDONINE [Concomitant]
     Active Substance: PREDNISOLONE
     Dosage: 10 MG IN THE MORNING AND 5 MG AT NOON
     Route: 048
     Dates: start: 20160603, end: 20160623
  25. PREDONINE [Concomitant]
     Active Substance: PREDNISOLONE
     Dosage: 5 MG, QD
     Route: 048
     Dates: start: 20160715, end: 20160802
  26. CLIVARINE [Concomitant]
     Active Substance: REVIPARIN SODIUM
     Indication: THROMBOTIC MICROANGIOPATHY
     Dosage: 5000 IU, DURING HAEMODIALYSIS
     Route: 041
     Dates: start: 20160525, end: 20160701
  27. MICARDIS [Concomitant]
     Active Substance: TELMISARTAN
     Indication: HYPERTENSION
     Dosage: 20 MG, QD
     Route: 048
     Dates: start: 20160628, end: 20160707
  28. MICARDIS [Concomitant]
     Active Substance: TELMISARTAN
     Dosage: 40 MG, NON-DIALYSIS DAY
     Route: 048
     Dates: start: 20160810
  29. MEVALOTIN [Concomitant]
     Active Substance: PRAVASTATIN SODIUM
     Indication: HYPERLIPIDAEMIA
     Dosage: 10 MG, QD
     Route: 048
     Dates: start: 20160517
  30. ONEALFA [Concomitant]
     Active Substance: ALFACALCIDOL
     Indication: OSTEOPOROSIS
     Dosage: 0.25 ?G, QD
     Route: 048
     Dates: start: 20160517
  31. PREDONINE [Concomitant]
     Active Substance: PREDNISOLONE
     Dosage: 3 MG, QD
     Route: 048
     Dates: start: 20160803, end: 20160913
  32. DOXAZOSIN [Concomitant]
     Active Substance: DOXAZOSIN\DOXAZOSIN MESYLATE
     Dosage: 1 MG, QD
     Route: 048
     Dates: start: 20160802, end: 20160805
  33. MICARDIS [Concomitant]
     Active Substance: TELMISARTAN
     Dosage: 20 MG, NON-DIALYSIS DAY
     Route: 048
     Dates: start: 20160708, end: 20160808
  34. HIRUDOID                           /00723701/ [Concomitant]
     Active Substance: PENTOSAN POLYSULFATE SODIUM
     Indication: PROPHYLAXIS
     Dosage: 1 DF, UNK
     Route: 061
     Dates: start: 20160711, end: 20160723
  35. CHICHINA [Concomitant]
     Indication: HAEMOSTASIS
     Dosage: 100 MG, QD
     Route: 041
     Dates: start: 20160711, end: 20160711
  36. CHICHINA [Concomitant]
     Indication: BIOPSY KIDNEY
  37. PREDONINE [Concomitant]
     Active Substance: PREDNISOLONE
     Dosage: 2 MG, QD
     Route: 048
     Dates: start: 20160914, end: 20161025
  38. FOSAMAC [Concomitant]
     Active Substance: ALENDRONATE SODIUM
     Indication: OSTEOPOROSIS
     Dosage: 35 MG, QW
     Route: 048
     Dates: start: 20160507, end: 20160611
  39. METHYLDOPA. [Concomitant]
     Active Substance: METHYLDOPA
     Indication: HYPERTENSION
     Dosage: 250 MG, BID
     Route: 048
     Dates: start: 20160806, end: 20160807
  40. SOLIRIS [Suspect]
     Active Substance: ECULIZUMAB
     Indication: HAEMOLYTIC URAEMIC SYNDROME
     Dosage: 900 MG, QW
     Route: 042
     Dates: start: 20160601, end: 20160628
  41. LACB-R [Concomitant]
     Indication: GASTROINTESTINAL MOTILITY DISORDER
     Dosage: 1 G, TID
     Route: 048
     Dates: start: 20160507, end: 20160526
  42. MEROPENEM. [Concomitant]
     Active Substance: MEROPENEM
     Indication: PNEUMONIA
     Dosage: 0.5 G, QD
     Route: 041
     Dates: start: 20160604, end: 20160608
  43. TRANSAMIN S [Concomitant]
     Active Substance: TRANEXAMIC ACID
     Indication: HAEMOSTASIS
     Dosage: 1000 MG, QD
     Route: 041
     Dates: start: 20160711, end: 20160711
  44. TRANSAMIN S [Concomitant]
     Active Substance: TRANEXAMIC ACID
     Indication: BIOPSY KIDNEY
  45. ATARAX [Concomitant]
     Active Substance: HYDROXYZINE HYDROCHLORIDE
     Indication: BIOPSY KIDNEY
     Dosage: 25 MG, QD
     Route: 041
     Dates: start: 20160711, end: 20160711
  46. CONIEL [Concomitant]
     Active Substance: BENIDIPINE HYDROCHLORIDE
     Indication: SECONDARY HYPERTENSION
     Dosage: 2 MG, QD
     Route: 048
     Dates: start: 20160429, end: 20160502
  47. RENIVACE [Concomitant]
     Active Substance: ENALAPRIL
     Indication: SECONDARY HYPERTENSION
     Dosage: 1.25 MG, QD
     Route: 048
     Dates: start: 20160606, end: 20160616
  48. METHYLPREDNISOLONE. [Concomitant]
     Active Substance: METHYLPREDNISOLONE
     Indication: THROMBOTIC MICROANGIOPATHY
     Dosage: 500 MG, QD
     Route: 041
     Dates: start: 20160504, end: 20160506
  49. PREDONINE [Concomitant]
     Active Substance: PREDNISOLONE
     Indication: THROMBOTIC MICROANGIOPATHY
     Dosage: 20 MG IN THE MORNING AND 10 MG AT NOON
     Route: 048
     Dates: start: 20160507, end: 20160519

REACTIONS (5)
  - Drug ineffective [Unknown]
  - Platelet count decreased [Recovered/Resolved]
  - Eosinophil count increased [Not Recovered/Not Resolved]
  - Haemoglobin decreased [Not Recovered/Not Resolved]
  - Cardiac failure [Recovering/Resolving]

NARRATIVE: CASE EVENT DATE: 20160602
